FAERS Safety Report 5291079-6 (Version None)
Quarter: 2007Q2

REPORT INFORMATION
  Report Type: 
  Country: None (occurrence: None)
  Receive Date: 20070409
  Receipt Date: 20070407
  Transmission Date: 20071010
  Serious: Yes (Disabling)
  Sender: FDA-Public Use
  Company Number: FR-GENENTECH-237150

PATIENT
  Age: 75 Year
  Sex: Female

DRUGS (6)
  1. MABTHERA [Suspect]
     Indication: RHEUMATOID ARTHRITIS
     Route: 042
  2. SOLUPRED [Concomitant]
     Indication: DRUG USE FOR UNKNOWN INDICATION
     Dosage: 10 MG, QD
  3. SOLUPRED [Concomitant]
     Dosage: 5 MG, QD
  4. NORCET [Concomitant]
     Indication: DRUG USE FOR UNKNOWN INDICATION
  5. TEMESTA [Concomitant]
     Indication: DRUG USE FOR UNKNOWN INDICATION
  6. PROPOFOL [Concomitant]
     Indication: DRUG USE FOR UNKNOWN INDICATION

REACTIONS (1)
  - NEUROPATHY [None]
